FAERS Safety Report 10158537 (Version 1)
Quarter: 2014Q2

REPORT INFORMATION
  Report Type: Spontaneous
  Country: NL (occurrence: NL)
  Receive Date: 20140507
  Receipt Date: 20140507
  Transmission Date: 20141212
  Serious: Yes (Other)
  Sender: FDA-Public Use
  Company Number: PHHY2014NL054903

PATIENT
  Sex: Male

DRUGS (1)
  1. RITALIN [Suspect]
     Indication: DISTURBANCE IN ATTENTION
     Dosage: UNK UKN, UNK

REACTIONS (3)
  - Intentional product misuse [Unknown]
  - Eructation [Not Recovered/Not Resolved]
  - Hiccups [Unknown]
